FAERS Safety Report 22320885 (Version 2)
Quarter: 2023Q2

REPORT INFORMATION
  Report Type: Spontaneous
  Country: PT (occurrence: PT)
  Receive Date: 20230515
  Receipt Date: 20230522
  Transmission Date: 20230722
  Serious: Yes (Other)
  Sender: FDA-Public Use
  Company Number: PT-GILEAD-2022-0599446

PATIENT
  Age: 48 Year
  Sex: Female

DRUGS (1)
  1. TRODELVY [Suspect]
     Active Substance: SACITUZUMAB GOVITECAN-HZIY
     Indication: Triple negative breast cancer
     Dosage: C4, D1D8
     Route: 065

REACTIONS (11)
  - Cholinergic syndrome [Recovering/Resolving]
  - Dyspnoea [Recovering/Resolving]
  - Chest discomfort [Recovering/Resolving]
  - Hypersensitivity [Recovered/Resolved]
  - Anxiety [Unknown]
  - Tachycardia [Unknown]
  - Pyrexia [Unknown]
  - Feeling hot [Unknown]
  - Nausea [Unknown]
  - Tremor [Unknown]
  - Tachypnoea [Unknown]

NARRATIVE: CASE EVENT DATE: 20220101
